FAERS Safety Report 7080173-5 (Version None)
Quarter: 2010Q4

REPORT INFORMATION
  Report Type: 
  Country: None (occurrence: None)
  Receive Date: 20101103
  Receipt Date: 20101020
  Transmission Date: 20110411
  Serious: Yes (Hospitalization)
  Sender: FDA-Public Use
  Company Number: US-BIOGENIDEC-2010BI036270

PATIENT
  Age: 56 Year
  Sex: Female

DRUGS (17)
  1. TYSABRI [Suspect]
     Indication: MULTIPLE SCLEROSIS
     Route: 042
     Dates: start: 20060926, end: 20090908
  2. TYSABRI [Suspect]
     Route: 042
     Dates: start: 20100209, end: 20101001
  3. LISINOPRIL [Concomitant]
     Indication: HYPERTENSION
     Route: 048
  4. LISINOPRIL [Concomitant]
     Route: 048
  5. ALPRAZOLAM [Concomitant]
     Indication: ANXIETY
     Route: 048
  6. LYRICA [Concomitant]
     Route: 048
  7. SEROQUEL [Concomitant]
     Route: 048
  8. LEVOTHROID [Concomitant]
     Indication: HYPOTHYROIDISM
     Route: 048
  9. ESTRATEST [Concomitant]
     Route: 048
  10. ACID GONE [Concomitant]
     Indication: GASTROOESOPHAGEAL REFLUX DISEASE
     Route: 048
  11. ASPIRIN [Concomitant]
  12. FOLTX [Concomitant]
  13. NEXIUM [Concomitant]
     Indication: GASTROOESOPHAGEAL REFLUX DISEASE
  14. DIOVAN [Concomitant]
  15. XANAX [Concomitant]
  16. VALIUM [Concomitant]
  17. MS CONTIN [Concomitant]

REACTIONS (1)
  - PLEURAL EFFUSION [None]
